FAERS Safety Report 18481899 (Version 1)
Quarter: 2020Q4

REPORT INFORMATION
  Report Type: Spontaneous
  Country: GB (occurrence: GB)
  Receive Date: 20201109
  Receipt Date: 20201109
  Transmission Date: 20210114
  Serious: Yes (Other)
  Sender: FDA-Public Use
  Company Number: GB-TEVA-2020-GB-1845388

PATIENT
  Age: 79 Year
  Sex: Male
  Weight: 122 kg

DRUGS (34)
  1. RANITIDINE. [Suspect]
     Active Substance: RANITIDINE
     Indication: GASTROOESOPHAGEAL REFLUX DISEASE
     Dosage: 150MILLIGRAM
     Dates: start: 20201002
  2. GLYCERYL TRINITRATE [Concomitant]
     Active Substance: NITROGLYCERIN
     Dosage: 1-2 SPRAY
     Dates: start: 20200930
  3. AMOXICILLIN. [Concomitant]
     Active Substance: AMOXICILLIN
     Dosage: 500MILLIGRAM
     Dates: start: 20200930, end: 20200930
  4. PREGABALIN. [Concomitant]
     Active Substance: PREGABALIN
     Dosage: VARIABLE DOSE
     Dates: start: 20200930
  5. MACROGOL [Concomitant]
     Active Substance: POLYETHYLENE GLYCOLS
     Dosage: 1-2 SACHET
     Dates: start: 20201005
  6. SODIUM LACTATE. [Concomitant]
     Active Substance: SODIUM LACTATE
     Dates: start: 20200930
  7. HYDROXOCOBALAMIN [Concomitant]
     Active Substance: HYDROXOCOBALAMIN
     Dosage: UNIT DOSE:1MILLIGRAM
     Dates: start: 20200930, end: 20200930
  8. NOVOMIX [Concomitant]
     Active Substance: INSULIN ASPART
     Dates: start: 20201003
  9. ACIDEX [Concomitant]
     Active Substance: CALCIUM CARBONATE\SODIUM ALGINATE\SODIUM BICARBONATE
     Dosage: 10ML
     Dates: start: 20201003
  10. OXYGEN. [Concomitant]
     Active Substance: OXYGEN
     Dosage: CONTINUOUS 1-10 LITRES/MINUTE
     Dates: start: 20201002
  11. GLUCOSE [Concomitant]
     Active Substance: DEXTROSE
     Dates: start: 20201001
  12. PHENOXYMETHYLPENICILLIN [Concomitant]
     Active Substance: PENICILLIN V
     Dates: start: 20201005
  13. APIXABAN [Concomitant]
     Active Substance: APIXABAN
     Dosage: 1DOSAGEFORM
     Dates: start: 20200930
  14. ALFACALCIDOL [Concomitant]
     Active Substance: ALFACALCIDOL
     Dosage: 1DOSAGEFORM
     Dates: start: 20201006
  15. ATORVASTATIN [Concomitant]
     Active Substance: ATORVASTATIN
     Dosage: 1DOSAGEFORM
     Dates: start: 20200930
  16. PARACETAMOL [Concomitant]
     Active Substance: ACETAMINOPHEN
     Dosage: 1-2
     Dates: start: 20200930
  17. RANITIDINE. [Concomitant]
     Active Substance: RANITIDINE
     Indication: GASTROOESOPHAGEAL REFLUX DISEASE
     Dosage: 150MILLIGRAM
     Dates: start: 20201002, end: 20201005
  18. CODEINE PHOSPHATE [Concomitant]
     Active Substance: CODEINE PHOSPHATE
     Dosage: 1-2
     Dates: start: 20200930
  19. POTASSIUM CHLORIDE. [Concomitant]
     Active Substance: POTASSIUM CHLORIDE
     Dates: start: 20201001
  20. FUROSEMIDE. [Concomitant]
     Active Substance: FUROSEMIDE
     Dosage: VARIABLE DOSE
     Dates: start: 20200930
  21. ZEROBASE [Concomitant]
     Active Substance: MINERAL OIL\PARAFFIN
     Dosage: 1 APPLICATION(S) UNCHECKED UNITS:UNIT DOSE:1DOSAGEFORM
     Dates: start: 20201003
  22. RANITIDINE. [Concomitant]
     Active Substance: RANITIDINE
     Dosage: 150MILLIGRAM
     Dates: start: 20201002
  23. SODIUM CHLORIDE. [Concomitant]
     Active Substance: SODIUM CHLORIDE
     Dosage: 5ML
     Dates: start: 20200930
  24. TAMSULOSIN HYDROCHLORIDE. [Concomitant]
     Active Substance: TAMSULOSIN HYDROCHLORIDE
     Dosage: 1DOSAGEFORM
     Dates: start: 20200930
  25. SALBUTAMOL [Concomitant]
     Active Substance: ALBUTEROL
     Dosage: 5MILLIGRAM
     Dates: start: 20200930
  26. RABEPRAZOLE [Concomitant]
     Active Substance: RABEPRAZOLE
     Dates: start: 20201005
  27. PREDNISOLONE. [Concomitant]
     Active Substance: PREDNISOLONE
     Dosage: 6DOSAGEFORM
     Dates: start: 20200930
  28. AMITRIPTYLINE HYDROCHLORIDE. [Concomitant]
     Active Substance: AMITRIPTYLINE HYDROCHLORIDE
     Dosage: 3DOSAGEFORM
     Dates: start: 20200930
  29. BISOPROLOL [Concomitant]
     Active Substance: BISOPROLOL
     Dosage: UNIT DOSE:1DOSAGEFORM
     Dates: start: 20200930
  30. FINASTERIDE. [Concomitant]
     Active Substance: FINASTERIDE
     Dosage: 1DOSAGEFORM
     Dates: start: 20200930
  31. CYCLIZINE [Concomitant]
     Active Substance: CYCLIZINE
     Dosage: 50MILLIGRAM
     Dates: start: 20200930, end: 20201005
  32. ISOSORBIDE MONONITRATE. [Concomitant]
     Active Substance: ISOSORBIDE MONONITRATE
     Dosage: UNIT DOSE:1DOSAGEFORM
     Dates: start: 20201006
  33. MEROPENEM. [Concomitant]
     Active Substance: MEROPENEM
     Dosage: 500MILLIGRAM
     Dates: start: 20201001
  34. PIPERACILLIN. [Concomitant]
     Active Substance: PIPERACILLIN SODIUM
     Dosage: 4.5GRAM
     Dates: start: 20200930, end: 20201001

REACTIONS (2)
  - Delirium [Recovered/Resolved]
  - Hallucination, visual [Recovered/Resolved]

NARRATIVE: CASE EVENT DATE: 20201006
